FAERS Safety Report 4782712-3 (Version None)
Quarter: 2005Q3

REPORT INFORMATION
  Report Type: 
  Country: None (occurrence: None)
  Receive Date: 20050929
  Receipt Date: 20050815
  Transmission Date: 20060218
  Serious: Yes (Life-Threatening, Hospitalization)
  Sender: FDA-Public Use
  Company Number: 414515

PATIENT
  Sex: Female

DRUGS (1)
  1. COREG [Suspect]
     Route: 048

REACTIONS (1)
  - RESPIRATORY DISTRESS [None]
